FAERS Safety Report 10043337 (Version 1)
Quarter: 2014Q1

REPORT INFORMATION
  Report Type: Spontaneous
  Country: US (occurrence: None)
  Receive Date: 20140327
  Receipt Date: 20140327
  Transmission Date: 20141002
  Serious: Yes (Life-Threatening, Hospitalization, Other)
  Sender: FDA-Public Use
  Company Number: None

PATIENT
  Age: 29 Year
  Sex: Female
  Weight: 60 kg

DRUGS (1)
  1. TERBUTALINE [Suspect]
     Indication: TOCOLYSIS

REACTIONS (6)
  - Bradycardia [None]
  - Hypotension [None]
  - Loss of consciousness [None]
  - Bradyarrhythmia [None]
  - Exposure during pregnancy [None]
  - Cardio-respiratory arrest [None]
